FAERS Safety Report 8288033-9 (Version None)
Quarter: 2012Q2

REPORT INFORMATION
  Report Type: 
  Country: None (occurrence: None)
  Receive Date: 20120416
  Receipt Date: 20120404
  Transmission Date: 20120825
  Serious: Yes (Hospitalization)
  Sender: FDA-Public Use
  Company Number: FR-GLAXOSMITHKLINE-B0793325A

PATIENT
  Sex: Male

DRUGS (8)
  1. KERLONE [Concomitant]
  2. OLMESARTAN MEDOXOMIL [Concomitant]
  3. MEDIATENSYL [Concomitant]
  4. ASPIRIN [Concomitant]
  5. ESIDRIX [Concomitant]
  6. ZOLPIDEM TARTRATE [Concomitant]
  7. ARIXTRA [Suspect]
     Indication: PHLEBITIS
     Dosage: 7.5MG PER DAY
     Route: 058
     Dates: start: 20120201, end: 20120201
  8. LERCANIDIPINE [Concomitant]

REACTIONS (8)
  - OFF LABEL USE [None]
  - ANAEMIA [None]
  - MUSCLE HAEMORRHAGE [None]
  - PAIN IN EXTREMITY [None]
  - OVERDOSE [None]
  - GROIN PAIN [None]
  - ARTHROPATHY [None]
  - ARTHRALGIA [None]
